FAERS Safety Report 26200393 (Version 1)
Quarter: 2025Q4

REPORT INFORMATION
  Report Type: Report from Study
  Country: EU (occurrence: EU)
  Receive Date: 20251225
  Receipt Date: 20251225
  Transmission Date: 20260118
  Serious: Yes (Hospitalization, Other)
  Sender: GENMAB
  Company Number: None

PATIENT
  Age: 53 Year
  Sex: Male
  Weight: 73 kg

DRUGS (39)
  1. EPCORITAMAB [Suspect]
     Active Substance: EPCORITAMAB
     Indication: Diffuse large B-cell lymphoma
     Dosage: C1D1
     Route: 058
     Dates: start: 20231026, end: 20231026
  2. EPCORITAMAB [Suspect]
     Active Substance: EPCORITAMAB
     Dosage: C1, D8
     Route: 058
     Dates: start: 20231103, end: 20231103
  3. EPCORITAMAB [Suspect]
     Active Substance: EPCORITAMAB
     Dosage: C1, D15 AND D22
     Route: 058
     Dates: start: 20231110, end: 20231117
  4. EPCORITAMAB [Suspect]
     Active Substance: EPCORITAMAB
     Dosage: C2,D1 AND D8
     Route: 058
     Dates: start: 20231123, end: 20231130
  5. EPCORITAMAB [Suspect]
     Active Substance: EPCORITAMAB
     Dosage: C3, D1 AND D8
     Route: 058
     Dates: start: 20231227, end: 20240104
  6. EPCORITAMAB [Suspect]
     Active Substance: EPCORITAMAB
     Dosage: C4,D1 AND D8
     Route: 058
     Dates: start: 20240124, end: 20240207
  7. DEXAMETHASONE [Concomitant]
     Active Substance: DEXAMETHASONE
     Indication: Prophylaxis
     Dosage: FROM DAY 1 TO DAY 4 OF EACH CYCLE
     Route: 048
     Dates: start: 20231103, end: 20240210
  8. SMECTA [Concomitant]
     Active Substance: MONTMORILLONITE
     Indication: Diarrhoea
     Dosage: 3 SACHETS
     Route: 048
     Dates: start: 20231205, end: 20231207
  9. SMECTA [Concomitant]
     Active Substance: MONTMORILLONITE
     Dosage: 3 SACHETS
     Route: 048
     Dates: start: 20231218, end: 20240218
  10. FILGRASTIM [Concomitant]
     Active Substance: FILGRASTIM
     Indication: Colony stimulating factor therapy
     Dosage: EVERY 1 CYCLICAL
     Route: 058
     Dates: start: 20231129, end: 20240204
  11. CIPROFLOXACIN [Concomitant]
     Active Substance: CIPROFLOXACIN
     Indication: Pseudomonal bacteraemia
     Dosage: UNK
     Route: 048
     Dates: start: 20231205, end: 20231207
  12. CIPROFLOXACIN [Concomitant]
     Active Substance: CIPROFLOXACIN
     Dosage: 1500 MILLIGRAM, QD
     Route: 048
     Dates: start: 20231216, end: 20231221
  13. ZOPICLONE [Concomitant]
     Active Substance: ZOPICLONE
     Indication: Sleep disorder
     Dosage: 7.5 MILLIGRAM, QD
     Route: 048
     Dates: start: 20231218, end: 20240218
  14. AUGMENTIN [Concomitant]
     Active Substance: AMOXICILLIN\CLAVULANATE POTASSIUM
     Indication: Bacterial infection
     Dosage: UNK
     Route: 048
     Dates: start: 20231205, end: 20231207
  15. PANTOPRAZOLE SODIUM [Concomitant]
     Active Substance: PANTOPRAZOLE SODIUM
     Indication: Product used for unknown indication
     Dosage: 20 MILLIGRAM, QD
     Route: 048
  16. VEKLURY [Concomitant]
     Active Substance: REMDESIVIR
     Indication: COVID-19
     Dosage: 200 MILLIGRAM, QD
     Dates: start: 20231207, end: 20231215
  17. AMIKACIN [Concomitant]
     Active Substance: AMIKACIN
     Indication: Bacterial infection
     Dosage: 2500 MILLIGRAM
     Route: 042
     Dates: start: 20231207, end: 20231207
  18. LEUCOVORIN CALCIUM [Concomitant]
     Active Substance: LEUCOVORIN CALCIUM
     Indication: Haematotoxicity
     Dosage: 50 MILLIGRAM, WEEKLY
     Route: 048
  19. GABAPENTIN [Concomitant]
     Active Substance: GABAPENTIN
     Indication: Pain
     Dosage: 300 MILLIGRAM, QD
     Route: 048
     Dates: start: 20240104, end: 20240109
  20. GABAPENTIN [Concomitant]
     Active Substance: GABAPENTIN
     Dosage: 600 MILLIGRAM, QD
     Route: 048
     Dates: start: 20240109, end: 20240114
  21. GABAPENTIN [Concomitant]
     Active Substance: GABAPENTIN
     Dosage: 900 MILLIGRAM, QD
     Route: 048
     Dates: start: 20240114, end: 20240314
  22. VORICONAZOLE [Concomitant]
     Active Substance: VORICONAZOLE
     Indication: Antifungal prophylaxis
     Dosage: 500 MILLIGRAM, QD
     Route: 048
  23. METOCLOPRAMIDE [Concomitant]
     Active Substance: METOCLOPRAMIDE
     Indication: Nausea
     Dosage: 30 MILLIGRAM, QD
     Route: 048
     Dates: start: 20231218, end: 20240218
  24. CYTARABINE [Concomitant]
     Active Substance: CYTARABINE
     Indication: Diffuse large B-cell lymphoma
     Dosage: C1, D1 AND D2
     Route: 042
     Dates: start: 20231026, end: 20231027
  25. CYTARABINE [Concomitant]
     Active Substance: CYTARABINE
     Dosage: C2, D1 AND D2
     Route: 042
     Dates: start: 20231123, end: 20231124
  26. CYTARABINE [Concomitant]
     Active Substance: CYTARABINE
     Dosage: C2, D8 AND D9
     Route: 042
     Dates: start: 20231130, end: 20231201
  27. CYTARABINE [Concomitant]
     Active Substance: CYTARABINE
     Dosage: C3, D1 AND D8
     Route: 042
     Dates: start: 20231227, end: 20240104
  28. VALACYCLOVIR [Concomitant]
     Active Substance: VALACYCLOVIR HYDROCHLORIDE
     Indication: Infection prophylaxis
     Dosage: 1000 MILLIGRAM, QD
     Route: 048
  29. RACECADOTRIL [Concomitant]
     Active Substance: RACECADOTRIL
     Indication: Diarrhoea
     Dosage: 300 MILLIGRAM, QD
     Route: 048
     Dates: start: 20231205, end: 20231207
  30. RACECADOTRIL [Concomitant]
     Active Substance: RACECADOTRIL
     Dosage: 300 MILLIGRAM, QD
     Route: 048
     Dates: start: 20231218, end: 20240218
  31. POTASSIUM CHLORIDE [Concomitant]
     Active Substance: POTASSIUM CHLORIDE
     Indication: Hypokalaemia
     Dosage: 2 DOSAGE FORM, QD
     Route: 048
     Dates: start: 20231208, end: 20231208
  32. POTASSIUM CHLORIDE [Concomitant]
     Active Substance: POTASSIUM CHLORIDE
     Dosage: 6 DOSAGE FORM, QD
     Route: 048
     Dates: start: 20231209, end: 20231211
  33. POTASSIUM CHLORIDE [Concomitant]
     Active Substance: POTASSIUM CHLORIDE
     Dosage: 2 DOSAGE FORM, QD
     Route: 048
     Dates: start: 20231218, end: 20231225
  34. JANUVIA [Concomitant]
     Active Substance: SITAGLIPTIN PHOSPHATE
     Indication: Type 2 diabetes mellitus
     Dosage: 100 MILLIGRAM, QD
     Route: 048
  35. CEFEPIME HYDROCHLORIDE [Concomitant]
     Active Substance: CEFEPIME HYDROCHLORIDE
     Indication: Pseudomonal bacteraemia
     Dosage: 6 GRAM, QD
     Route: 042
     Dates: start: 20231215, end: 20231215
  36. PIPERACILLIN SODIUM\TAZOBACTAM SODIUM [Concomitant]
     Active Substance: PIPERACILLIN SODIUM\TAZOBACTAM SODIUM
     Indication: Bacterial infection
     Dosage: EVERY 6 HOURS, 4 TIMES A DAY4 G/500 MG
     Route: 042
     Dates: start: 20231206, end: 20231215
  37. ELIQUIS [Concomitant]
     Active Substance: APIXABAN
     Indication: Thrombosis
     Dosage: 10 MILLIGRAM, QD
     Route: 048
     Dates: start: 202304
  38. ELIQUIS [Concomitant]
     Active Substance: APIXABAN
     Indication: Pulmonary embolism
  39. BACTRIM [Concomitant]
     Active Substance: SULFAMETHOXAZOLE\TRIMETHOPRIM
     Indication: Infection prophylaxis
     Dosage: 1 DOSAGE FORM,3/WEEK
     Route: 048

REACTIONS (3)
  - Pancytopenia [Not Recovered/Not Resolved]
  - Neuropathy peripheral [Not Recovered/Not Resolved]
  - Pneumonia [Not Recovered/Not Resolved]

NARRATIVE: CASE EVENT DATE: 20231207
